FAERS Safety Report 13752083 (Version 1)
Quarter: 2017Q3

REPORT INFORMATION
  Report Type: Spontaneous
  Country: AT (occurrence: AT)
  Receive Date: 20170713
  Receipt Date: 20170713
  Transmission Date: 20171127
  Serious: Yes (Hospitalization, Other)
  Sender: FDA-Public Use
  Company Number: AT-ELI_LILLY_AND_COMPANY-AT201707001254

PATIENT
  Age: 51 Year
  Sex: Male

DRUGS (14)
  1. LEPONEX [Suspect]
     Active Substance: CLOZAPINE
     Dosage: 75 MG, UNKNOWN
     Route: 065
     Dates: start: 20160519, end: 20160524
  2. CONCOR [Concomitant]
     Active Substance: BISOPROLOL FUMARATE
     Dosage: 2.5 MG, UNKNOWN
     Route: 065
     Dates: start: 20160520, end: 20160531
  3. XEPLION [Suspect]
     Active Substance: PALIPERIDONE PALMITATE
     Indication: PRODUCT USED FOR UNKNOWN INDICATION
     Dosage: 150 MG, UNKNOWN
     Route: 030
     Dates: start: 20170506, end: 20170506
  4. XEPLION [Suspect]
     Active Substance: PALIPERIDONE PALMITATE
     Dosage: 100 MG, UNKNOWN
     Route: 030
     Dates: start: 20160513, end: 20160513
  5. LEPONEX [Suspect]
     Active Substance: CLOZAPINE
     Indication: PRODUCT USED FOR UNKNOWN INDICATION
     Dosage: 25 MG, UNKNOWN
     Route: 065
     Dates: start: 20160517, end: 20160517
  6. RISPERDAL [Concomitant]
     Active Substance: RISPERIDONE
     Indication: PRODUCT USED FOR UNKNOWN INDICATION
     Dosage: 4 MG, UNKNOWN
     Route: 065
     Dates: start: 20160504, end: 20160506
  7. ZYPREXA [Suspect]
     Active Substance: OLANZAPINE
     Indication: SCHIZOPHRENIA
     Dosage: 10 MG, UNKNOWN
     Route: 065
     Dates: start: 20160504, end: 20160516
  8. CONCOR [Concomitant]
     Active Substance: BISOPROLOL FUMARATE
     Indication: PRODUCT USED FOR UNKNOWN INDICATION
     Dosage: 5 MG, UNKNOWN
     Route: 065
     Dates: start: 20160504, end: 20160513
  9. LEPONEX [Suspect]
     Active Substance: CLOZAPINE
     Dosage: 100 MG, UNKNOWN
     Route: 065
     Dates: start: 20170525, end: 20170531
  10. PROTHIPENDYL HYDROCHLORIDE [Concomitant]
     Active Substance: PROTHIPENDYL HYDROCHLORIDE
     Indication: PRODUCT USED FOR UNKNOWN INDICATION
     Dosage: 80 MG, UNKNOWN
     Route: 065
     Dates: start: 20160504, end: 20160509
  11. PROTHIPENDYL HYDROCHLORIDE [Concomitant]
     Active Substance: PROTHIPENDYL HYDROCHLORIDE
     Dosage: 40 MG, UNKNOWN
     Route: 065
     Dates: start: 20160510, end: 20160531
  12. IVADAL [Concomitant]
     Active Substance: ZOLPIDEM TARTRATE
     Indication: PRODUCT USED FOR UNKNOWN INDICATION
     Dosage: 10 MG, UNKNOWN
     Route: 065
     Dates: start: 20160504, end: 20160531
  13. ZYPREXA [Suspect]
     Active Substance: OLANZAPINE
     Dosage: 5 MG, UNKNOWN
     Route: 065
     Dates: start: 20160517, end: 20160518
  14. LEPONEX [Suspect]
     Active Substance: CLOZAPINE
     Dosage: 50 MG, UNKNOWN
     Route: 065
     Dates: start: 20170518, end: 20170518

REACTIONS (11)
  - Hypotension [Recovered/Resolved]
  - Syncope [Recovered/Resolved]
  - Palpitations [Unknown]
  - Pyrexia [Recovered/Resolved]
  - Dyspnoea [Recovered/Resolved]
  - Pulmonary embolism [Recovered/Resolved]
  - Deep vein thrombosis [Recovered/Resolved]
  - Myocarditis [Recovered/Resolved with Sequelae]
  - Ventricular hypokinesia [Not Recovered/Not Resolved]
  - Fatigue [Unknown]
  - Blood creatine phosphokinase increased [Recovered/Resolved]

NARRATIVE: CASE EVENT DATE: 20160529
